FAERS Safety Report 17905493 (Version 1)
Quarter: 2020Q2

REPORT INFORMATION
  Report Type: Spontaneous
  Country: US (occurrence: US)
  Receive Date: 20200616
  Receipt Date: 20200616
  Transmission Date: 20200714
  Serious: No
  Sender: FDA-Public Use
  Company Number: US-ROCHE-2344718

PATIENT
  Sex: Female

DRUGS (2)
  1. ACTEMRA [Suspect]
     Active Substance: TOCILIZUMAB
     Indication: DERMATITIS
  2. ACTEMRA [Suspect]
     Active Substance: TOCILIZUMAB
     Indication: ARTHRITIS
     Dosage: STRENGTH 162 MG/0.9 ML
     Route: 058
     Dates: start: 20190529

REACTIONS (3)
  - Acne [Unknown]
  - Fatigue [Unknown]
  - Weight increased [Unknown]
